FAERS Safety Report 6096916-3 (Version None)
Quarter: 2009Q1

REPORT INFORMATION
  Report Type: 
  Country: None (occurrence: None)
  Receive Date: 20090227
  Receipt Date: 20090216
  Transmission Date: 20090719
  Serious: Yes (Hospitalization)
  Sender: FDA-Public Use
  Company Number: TW-PFIZER INC-2009170813

PATIENT

DRUGS (6)
  1. SUNITINIB MALATE [Suspect]
     Indication: HEPATIC NEOPLASM MALIGNANT
     Dosage: 25 MG, 1X/DAY
     Route: 048
     Dates: start: 20081205, end: 20090207
  2. PARIET [Concomitant]
     Indication: GASTRIC ULCER
     Dosage: 20 MG, 1X/DAY
     Dates: start: 20080403
  3. CIMETIDINE [Concomitant]
     Indication: GASTRIC ULCER
     Dosage: 400 MG, 1X/DAY
     Dates: start: 20081118
  4. ADALAT [Concomitant]
     Indication: HYPERTENSION
     Dosage: 30 MG, 1X/DAY
     Dates: start: 20090106
  5. CHLORAMPHENICOL [Concomitant]
     Indication: ANTIBIOTIC PROPHYLAXIS
     Dosage: 0.25 %, 3X/DAY
     Dates: start: 20081221
  6. SPIROTONE [Concomitant]
     Indication: OEDEMA
     Dosage: 25 MG, 1X/DAY
     Dates: start: 20090106

REACTIONS (2)
  - JAUNDICE [None]
  - THROMBOCYTOPENIA [None]
